FAERS Safety Report 17421419 (Version 3)
Quarter: 2020Q1

REPORT INFORMATION
  Report Type: Report from Study
  Country: US (occurrence: US)
  Receive Date: 20200214
  Receipt Date: 20200320
  Transmission Date: 20200409
  Serious: Yes (Hospitalization)
  Sender: FDA-Public Use
  Company Number: US-ACTELION-A-US2019-199214

PATIENT
  Sex: Female

DRUGS (2)
  1. METHOTREXATE. [Concomitant]
     Active Substance: METHOTREXATE
  2. OPSUMIT [Suspect]
     Active Substance: MACITENTAN
     Indication: PRODUCT USED FOR UNKNOWN INDICATION
     Dosage: 10 MG, QD
     Route: 048
     Dates: start: 20200106

REACTIONS (8)
  - Wheezing [Unknown]
  - Hospitalisation [Unknown]
  - Nasopharyngitis [Unknown]
  - Cough [Unknown]
  - Renal function test abnormal [Unknown]
  - Liver function test increased [Unknown]
  - Pneumonia [Unknown]
  - Fatigue [Unknown]
